FAERS Safety Report 18146886 (Version 5)
Quarter: 2020Q3

REPORT INFORMATION
  Report Type: Spontaneous
  Country: US (occurrence: US)
  Receive Date: 20200813
  Receipt Date: 20200924
  Transmission Date: 20201103
  Serious: Yes (Other)
  Sender: FDA-Public Use
  Company Number: US-GLAXOSMITHKLINE-US2020AMR153912

PATIENT
  Age: 54 Year
  Sex: Female

DRUGS (4)
  1. ZEJULA [Suspect]
     Active Substance: NIRAPARIB
     Indication: OVARIAN CANCER
     Dosage: 200 MG, QD (SAMPLES FROM ANOTHER PHARMACY)
     Route: 065
     Dates: start: 20200617
  2. KEYTRUDA [Suspect]
     Active Substance: PEMBROLIZUMAB
     Indication: PRODUCT USED FOR UNKNOWN INDICATION
     Dosage: UNK
     Route: 065
  3. ZEJULA [Suspect]
     Active Substance: NIRAPARIB
     Dosage: 200 MG, QD
     Route: 048
     Dates: start: 20200731
  4. ZEJULA [Suspect]
     Active Substance: NIRAPARIB
     Dosage: 200 MG, QD

REACTIONS (14)
  - Back injury [Unknown]
  - Nausea [Unknown]
  - Adverse drug reaction [Unknown]
  - Social problem [Unknown]
  - Red blood cell count decreased [Not Recovered/Not Resolved]
  - Dysphonia [Unknown]
  - Fatigue [Not Recovered/Not Resolved]
  - Tremor [Unknown]
  - Back pain [Unknown]
  - Feeling abnormal [Unknown]
  - Dyspnoea [Unknown]
  - Dry mouth [Unknown]
  - Lymphoma [Not Recovered/Not Resolved]
  - Product use complaint [Unknown]

NARRATIVE: CASE EVENT DATE: 20200902
